FAERS Safety Report 4285892-1 (Version None)
Quarter: 2004Q1

REPORT INFORMATION
  Report Type: 
  Country: None (occurrence: None)
  Receive Date: 20040204
  Receipt Date: 20040204
  Transmission Date: 20041129
  Serious: Yes (Other)
  Sender: FDA-Public Use
  Company Number: None

PATIENT
  Sex: Male
  Weight: 72.9384 kg

DRUGS (4)
  1. IOPAMIDOL [Suspect]
     Indication: CATHETERISATION CARDIAC
     Dosage: INTRAVENOUS
     Route: 042
     Dates: start: 20031231, end: 20031231
  2. IOPAMIDOL [Suspect]
     Indication: CHEST PAIN
     Dosage: INTRAVENOUS
     Route: 042
     Dates: start: 20031231, end: 20031231
  3. MORPHINE SULFATE [Concomitant]
  4. VALIUM [Concomitant]

REACTIONS (2)
  - PRURITUS [None]
  - URTICARIA [None]
